FAERS Safety Report 7339460-5 (Version None)
Quarter: 2011Q1

REPORT INFORMATION
  Report Type: 
  Country: None (occurrence: None)
  Receive Date: 20110308
  Receipt Date: 20110112
  Transmission Date: 20110831
  Serious: No
  Sender: FDA-Public Use
  Company Number: US-AMGEN-USASP2011002083

PATIENT
  Age: 80 Year
  Sex: Female

DRUGS (1)
  1. PROLIA [Suspect]
     Indication: OSTEOPOROSIS POSTMENOPAUSAL
     Dates: start: 20101124

REACTIONS (5)
  - NAIL HYPERTROPHY [None]
  - NAIL BED TENDERNESS [None]
  - NAIL DISCOLOURATION [None]
  - NAIL DISORDER [None]
  - VITAMIN B COMPLEX DEFICIENCY [None]
